FAERS Safety Report 24548007 (Version 1)
Quarter: 2024Q4

REPORT INFORMATION
  Report Type: Report from Study
  Country: CA (occurrence: CA)
  Receive Date: 20241025
  Receipt Date: 20241025
  Transmission Date: 20250114
  Serious: Yes (Other)
  Sender: CELLTRION
  Company Number: CA-CELLTRION INC.-2024CA009502

PATIENT

DRUGS (10)
  1. YUFLYMA [Suspect]
     Active Substance: ADALIMUMAB-AATY
     Indication: Psoriatic arthropathy
     Dosage: 40 MG, Q2WEEKS
     Route: 058
     Dates: start: 20240415
  2. YUFLYMA [Suspect]
     Active Substance: ADALIMUMAB-AATY
     Indication: Crohn^s disease
     Dosage: 40 MG, Q2WEEKS
     Route: 058
     Dates: start: 20241010
  3. METHOTREXATE [Concomitant]
     Active Substance: METHOTREXATE
     Dosage: 0.8 ML WEEKLY (START DATE: 20 YEARS)
     Route: 058
  4. GABAPENTIN [Concomitant]
     Active Substance: GABAPENTIN
     Dosage: 3X100 MG NIGHTLY
  5. TRIAMTERENE [Concomitant]
     Active Substance: TRIAMTERENE
     Dosage: 12.5 MG, QD
  6. FOLIC ACID [Concomitant]
     Active Substance: FOLIC ACID
     Dosage: 5 MG DAILY 6X PER WEEK
  7. ROSUVASTATIN [Concomitant]
     Active Substance: ROSUVASTATIN
     Dosage: 20 MG, QD
  8. PANTOPRAZOLE [Concomitant]
     Active Substance: PANTOPRAZOLE
     Dosage: 40 MG EVERY 3RD DAY
  9. PROTOPIC [Concomitant]
     Active Substance: TACROLIMUS
     Indication: Psoriasis
     Dosage: DAILY
  10. ORACORT [Concomitant]
     Indication: Aphthous ulcer
     Dosage: WEEKLY (PREEXISTING TO THERAPY)

REACTIONS (4)
  - Crohn^s disease [Not Recovered/Not Resolved]
  - Psoriatic arthropathy [Not Recovered/Not Resolved]
  - Headache [Recovering/Resolving]
  - Therapeutic response decreased [Not Recovered/Not Resolved]
